FAERS Safety Report 24257666 (Version 2)
Quarter: 2025Q1

REPORT INFORMATION
  Report Type: Spontaneous
  Country: IT (occurrence: IT)
  Receive Date: 20240828
  Receipt Date: 20250329
  Transmission Date: 20250408
  Serious: Yes (Other)
  Sender: AUROBINDO
  Company Number: IT-ORPHANEU-2024006221

PATIENT
  Age: 23 Week
  Sex: Male
  Weight: 0.7 kg

DRUGS (2)
  1. IBUPROFEN [Suspect]
     Active Substance: IBUPROFEN
     Indication: Patent ductus arteriosus
     Route: 065
  2. INDOMETHACIN [Suspect]
     Active Substance: INDOMETHACIN
     Indication: Patent ductus arteriosus
     Route: 065

REACTIONS (2)
  - Intestinal obstruction [Recovering/Resolving]
  - Abdominal distension [Recovered/Resolved]
